FAERS Safety Report 11095840 (Version 2)
Quarter: 2015Q2

REPORT INFORMATION
  Report Type: Spontaneous
  Country: BR (occurrence: BR)
  Receive Date: 20150507
  Receipt Date: 20150516
  Transmission Date: 20150821
  Serious: Yes (Other)
  Sender: FDA-Public Use
  Company Number: PHHY2015BR053198

PATIENT
  Age: 87 Year
  Sex: Female
  Weight: 72 kg

DRUGS (13)
  1. ENSURE [Concomitant]
     Active Substance: AMINO ACIDS\DEXTROSE\ELECTROLYTES NOS\SOYBEAN OIL\VITAMINS
     Indication: NUTRITIONAL SUPPLEMENTATION
     Dosage: 2 DF (2 SPOONS), QID
     Route: 048
  2. CARVEDILOL. [Concomitant]
     Active Substance: CARVEDILOL
     Indication: CARDIAC DISORDER
     Dosage: 2 DF, QD
     Route: 048
  3. DIOSMIN SDU [Concomitant]
     Active Substance: DIOSMIN
     Indication: VARICOSE VEIN
     Dosage: 1 DF, QD
     Route: 048
  4. PINAZAN [Suspect]
     Active Substance: CLOZAPINE
     Indication: BIPOLAR I DISORDER
     Dosage: 0.5 DF, QD
     Route: 048
  5. VASOPRIL                                /BRA/ [Concomitant]
     Active Substance: FOSINOPRIL
     Indication: PRODUCT USED FOR UNKNOWN INDICATION
     Dosage: 1 DF, QD
     Route: 048
  6. ADDERA D3 [Concomitant]
     Active Substance: CHOLECALCIFEROL
     Indication: VITAMIN SUPPLEMENTATION
     Dosage: 7 DRP, QD
     Route: 048
  7. MOTILIUM [Concomitant]
     Active Substance: DOMPERIDONE
     Indication: FLATULENCE
     Dosage: 2 DF, QD
     Route: 048
  8. LACRIMA PLUS [Concomitant]
     Indication: EYE LUBRICATION THERAPY
     Dosage: 1 DRP, BID (BOTH EYES)
     Route: 047
  9. LEPONEX [Suspect]
     Active Substance: CLOZAPINE
     Indication: BIPOLAR I DISORDER
     Dosage: 0.5 DF, QD
     Route: 048
  10. CENTRUM SILVER [Concomitant]
     Active Substance: VITAMINS
     Indication: VITAMIN SUPPLEMENTATION
     Dosage: 1 DF, QD
     Route: 048
  11. OMEPRAZOLE. [Concomitant]
     Active Substance: OMEPRAZOLE
     Indication: GASTRIC DISORDER
     Dosage: 1 DF, QD
     Route: 048
  12. HYDERGINE [Concomitant]
     Active Substance: ERGOLOID MESYLATES
     Indication: BLOOD DISORDER
     Dosage: 20 DRP, QD
     Route: 048
  13. CLOPIDOGREL BISULFATE. [Concomitant]
     Active Substance: CLOPIDOGREL BISULFATE
     Indication: BLOOD DISORDER
     Dosage: 1 DF, QD
     Route: 048

REACTIONS (7)
  - Parkinson^s disease [Not Recovered/Not Resolved]
  - Hallucination [Recovered/Resolved]
  - Dementia Alzheimer^s type [Not Recovered/Not Resolved]
  - Glaucoma [Recovering/Resolving]
  - Blood cholesterol increased [Unknown]
  - Off label use [Unknown]
  - Pneumonia aspiration [Recovering/Resolving]

NARRATIVE: CASE EVENT DATE: 20150502
